FAERS Safety Report 16989853 (Version 1)
Quarter: 2019Q4

REPORT INFORMATION
  Report Type: Spontaneous
  Country: US (occurrence: US)
  Receive Date: 20191104
  Receipt Date: 20191104
  Transmission Date: 20200122
  Serious: No
  Sender: FDA-Public Use
  Company Number: US-HORIZON-VIM-0382-2019

PATIENT
  Age: 51 Year
  Sex: Female

DRUGS (1)
  1. VIMOVO [Suspect]
     Active Substance: ESOMEPRAZOLE MAGNESIUM\NAPROXEN
     Indication: ARTHRITIS
     Dosage: 1 TAB BID
     Dates: start: 201907, end: 201910

REACTIONS (2)
  - Gingival bleeding [Unknown]
  - Abdominal pain upper [Unknown]
